FAERS Safety Report 17245103 (Version 3)
Quarter: 2020Q1

REPORT INFORMATION
  Report Type: Report from Study
  Country: US (occurrence: US)
  Receive Date: 20200108
  Receipt Date: 20200318
  Transmission Date: 20200409
  Serious: Yes (Hospitalization)
  Sender: FDA-Public Use
  Company Number: US-EMD SERONO-9138334

PATIENT
  Sex: Female

DRUGS (1)
  1. REBIF [Suspect]
     Active Substance: INTERFERON BETA-1A
     Indication: MULTIPLE SCLEROSIS
     Dosage: PREFILLED SYRINGE
     Route: 058
     Dates: start: 20100716

REACTIONS (9)
  - Diarrhoea [Recovered/Resolved]
  - Weight decreased [Unknown]
  - Chest pain [Unknown]
  - Pancreatitis acute [Recovered/Resolved]
  - Oesophageal disorder [Recovering/Resolving]
  - Malaise [Unknown]
  - Blood potassium decreased [Unknown]
  - Benign neoplasm [Unknown]
  - Dysphagia [Unknown]

NARRATIVE: CASE EVENT DATE: 2019
